FAERS Safety Report 4662416-8 (Version None)
Quarter: 2005Q2

REPORT INFORMATION
  Report Type: 
  Country: None (occurrence: None)
  Receive Date: 20050512
  Receipt Date: 20050429
  Transmission Date: 20051028
  Serious: Yes (Hospitalization)
  Sender: FDA-Public Use
  Company Number: 2005060274

PATIENT
  Age: 75 Year
  Sex: Female
  Weight: 84 kg

DRUGS (7)
  1. SOMAVERT [Suspect]
     Indication: ACROMEGALY
     Dosage: 10 MG (10 MG, DAILY), SUBCUTANEOUS
     Route: 058
     Dates: start: 20040608, end: 20040624
  2. TRIMETAZIDINE HYDROCHLORIDE (TRIMETAZIDINE HYDROCHLORIDE) [Concomitant]
  3. DIOVAN HCT [Concomitant]
  4. NICARDIPINE HCL [Concomitant]
  5. RILMENIDINE (RILMENIDINE) [Concomitant]
  6. ISOPHANE INSULIN [Concomitant]
  7. INSULIN LISPRO (INSULIN LISPRO) [Concomitant]

REACTIONS (4)
  - CONDITION AGGRAVATED [None]
  - DRUG INEFFECTIVE [None]
  - HYPERTENSION [None]
  - PITUITARY TUMOUR BENIGN [None]
